FAERS Safety Report 10632504 (Version 1)
Quarter: 2014Q4

REPORT INFORMATION
  Report Type: Spontaneous
  Country: US (occurrence: US)
  Receive Date: 20141205
  Receipt Date: 20141205
  Transmission Date: 20150529
  Serious: No
  Sender: FDA-Public Use
  Company Number: US-BRISTOL-MYERS SQUIBB COMPANY-21531447

PATIENT
  Age: 5 Year
  Sex: Female

DRUGS (3)
  1. RAPAMUNE [Concomitant]
     Active Substance: SIROLIMUS
     Indication: HEART TRANSPLANT
  2. ONDANSETRON [Concomitant]
     Active Substance: ONDANSETRON
  3. SPRYCEL [Suspect]
     Active Substance: DASATINIB
     Dosage: DOSE WAS INCREASED TO 50 MG DAILY ON 23OCT2014
     Route: 048
     Dates: start: 2013

REACTIONS (1)
  - Wrong technique in drug usage process [Unknown]

NARRATIVE: CASE EVENT DATE: 2013
